FAERS Safety Report 6788773-4 (Version None)
Quarter: 2010Q2

REPORT INFORMATION
  Report Type: 
  Country: None (occurrence: None)
  Receive Date: 20100623
  Receipt Date: 20080514
  Transmission Date: 20101027
  Serious: Yes (Other)
  Sender: FDA-Public Use
  Company Number: US-PFIZER INC-2008041192

PATIENT
  Sex: Female
  Weight: 59 kg

DRUGS (4)
  1. GEODON [Suspect]
     Indication: BIPOLAR DISORDER
     Route: 048
     Dates: start: 20080108
  2. WELLBUTRIN [Concomitant]
  3. TRILEPTAL [Concomitant]
  4. LISDEXAMFETAMINE DIMESYLATE [Concomitant]

REACTIONS (4)
  - FATIGUE [None]
  - INSOMNIA [None]
  - SOMNOLENCE [None]
  - TARDIVE DYSKINESIA [None]
